FAERS Safety Report 18322520 (Version 1)
Quarter: 2020Q3

REPORT INFORMATION
  Report Type: Spontaneous
  Country: US (occurrence: US)
  Receive Date: 20200928
  Receipt Date: 20200928
  Transmission Date: 20201103
  Serious: No
  Sender: FDA-Public Use
  Company Number: None

PATIENT
  Sex: Male

DRUGS (1)
  1. HAND SANITIZING GEL [Suspect]
     Active Substance: ALCOHOL
     Dates: start: 20200408

REACTIONS (4)
  - Application site dryness [None]
  - Application site erythema [None]
  - Application site pruritus [None]
  - Product odour abnormal [None]

NARRATIVE: CASE EVENT DATE: 20200911
